FAERS Safety Report 16775788 (Version 2)
Quarter: 2019Q3

REPORT INFORMATION
  Report Type: Spontaneous
  Country: NL (occurrence: NL)
  Receive Date: 20190905
  Receipt Date: 20190906
  Transmission Date: 20191005
  Serious: Yes (Other)
  Sender: FDA-Public Use
  Company Number: NL-PFIZER INC-2019376757

PATIENT
  Age: 77 Year
  Sex: Female

DRUGS (10)
  1. ALVESCO [Concomitant]
     Active Substance: CICLESONIDE
     Dosage: 2 DF, UNK (EVERY 12 HRS, 2 TIMES PER DAY 2 INHALATIONS)
     Dates: start: 20190620
  2. SPIRIVA [Concomitant]
     Active Substance: TIOTROPIUM BROMIDE MONOHYDRATE
     Dosage: 1 DF, 1X/DAY (1 TIMES A DAY 1 INHALATION)
     Dates: start: 20190501
  3. BERODUAL [Concomitant]
     Active Substance: FENOTEROL HYDROBROMIDE\IPRATROPIUM BROMIDE
     Dosage: 1 DF, UNK (AS NEEDED 4 TIMES PER DAY 1 INHALATION)
     Dates: start: 20190603
  4. VALSARTAN/HCT [Concomitant]
     Active Substance: HYDROCHLOROTHIAZIDE\VALSARTAN
     Dosage: UNK
     Dates: start: 20190625
  5. CARDURA [Interacting]
     Active Substance: DOXAZOSIN MESYLATE
     Indication: HYPERTENSION
     Dosage: 4 MG, UNK (EVERY 12 HRS, 2X/DAY 1 TABLET)
     Dates: start: 20190710
  6. COLECALCIFEROL [Concomitant]
     Active Substance: CHOLECALCIFEROL
     Dosage: 25000 IU, MONTHLY (1 TIME PER MONTH 1 CAPSULE)
     Dates: start: 20190308
  7. D-CURA [Concomitant]
     Dosage: UNK
     Dates: start: 20190527
  8. VASELIN [Concomitant]
     Dosage: 1 DF, UNK (EVERY 12 HRS, 2 TIMES PER DAY APPLIED)
     Dates: start: 20190529
  9. VORICONAZOLE. [Suspect]
     Active Substance: VORICONAZOLE
     Dosage: 200 MG, UNK (EVERY 12 HRS, 2 X PER DAY 1 TABLET)
     Dates: start: 20190412
  10. PANTOPRAZOLE [Concomitant]
     Active Substance: PANTOPRAZOLE
     Dosage: 20 MG, 1X/DAY (EVENIGS: 1 TABLET)
     Dates: start: 20180919

REACTIONS (2)
  - Orthostatic hypotension [Recovered/Resolved]
  - Drug interaction [Unknown]

NARRATIVE: CASE EVENT DATE: 20190711
